FAERS Safety Report 15330608 (Version 2)
Quarter: 2018Q4

REPORT INFORMATION
  Report Type: Spontaneous
  Country: CA (occurrence: CA)
  Receive Date: 20180829
  Receipt Date: 20181112
  Transmission Date: 20190204
  Serious: Yes (Other)
  Sender: FDA-Public Use
  Company Number: PHHY2018CA077493

PATIENT
  Sex: Male

DRUGS (2)
  1. HEPARIN SODIUM SANDOZ [Suspect]
     Active Substance: HEPARIN SODIUM
     Indication: PRODUCT USED FOR UNKNOWN INDICATION
     Dosage: 8000 U, UNK
     Route: 065
  2. HEPARIN SODIUM SANDOZ [Suspect]
     Active Substance: HEPARIN SODIUM
     Dosage: 3000 U, UNK
     Route: 065

REACTIONS (1)
  - Drug ineffective [Unknown]

NARRATIVE: CASE EVENT DATE: 20180817
